FAERS Safety Report 9945795 (Version 1)
Quarter: 2014Q1

REPORT INFORMATION
  Report Type: Spontaneous
  Country: US (occurrence: US)
  Receive Date: 20140303
  Receipt Date: 20140303
  Transmission Date: 20141002
  Serious: No
  Sender: FDA-Public Use
  Company Number: US-AMGEN-USASP2013069411

PATIENT
  Age: 55 Year
  Sex: Male
  Weight: 131.52 kg

DRUGS (7)
  1. ENBREL [Suspect]
     Indication: PRODUCT USED FOR UNKNOWN INDICATION
     Dosage: 50 MG, QWK
     Route: 058
  2. FUROSEMIDE [Concomitant]
     Dosage: 20 MG, UNK
  3. AMLODIPINE [Concomitant]
     Dosage: 2.5 MG, UNK
  4. ALLOPURINOL [Concomitant]
     Dosage: 100 MG, UNK
  5. FENOFIBRATE [Concomitant]
     Dosage: 134 MG, UNK
  6. NOVOLOG [Concomitant]
     Dosage: UNK (70/30)
  7. LANTUS [Concomitant]
     Dosage: 100/ML

REACTIONS (3)
  - Condition aggravated [Unknown]
  - Cough [Unknown]
  - Nasopharyngitis [Recovering/Resolving]
